FAERS Safety Report 4458162-6 (Version None)
Quarter: 2004Q3

REPORT INFORMATION
  Report Type: 
  Country: None (occurrence: None)
  Receive Date: 20040922
  Receipt Date: 20040910
  Transmission Date: 20050211
  Serious: Yes (Hospitalization)
  Sender: FDA-Public Use
  Company Number: RS004698-P

PATIENT
  Sex: Male

DRUGS (4)
  1. RABEPRAZOLE SODIUM [Suspect]
     Dosage: 20 MG, 1 IN 1 D, ORAL
     Route: 048
     Dates: start: 20040801
  2. VALACICLOVIR CHLORHYDRATE (VALACICLOVIR HYDROCHLORIDE) [Suspect]
     Dosage: 3 MG, ORAL
     Route: 048
     Dates: start: 20040801
  3. CIPROFLOXACIN MONOCHLORHYDRATE (CIPROFLOXACIN) [Suspect]
     Dosage: 1 GM, ORAL
     Route: 048
     Dates: start: 20040814, end: 20040817
  4. NIMESULIDE (NIMESULIDE) [Suspect]
     Dosage: 300 MG, ORAL
     Route: 048
     Dates: start: 20040814

REACTIONS (6)
  - APHTHOUS STOMATITIS [None]
  - CHROMATURIA [None]
  - MALAISE [None]
  - PHARYNGOLARYNGEAL PAIN [None]
  - SWEAT GLAND DISORDER [None]
  - SWELLING [None]
